FAERS Safety Report 8238451-X (Version None)
Quarter: 2012Q1

REPORT INFORMATION
  Report Type: 
  Country: None (occurrence: None)
  Receive Date: 20120327
  Receipt Date: 20120308
  Transmission Date: 20120608
  Serious: Yes (Death, Hospitalization)
  Sender: FDA-Public Use
  Company Number: JP-ROCHE-660422

PATIENT
  Sex: Male

DRUGS (13)
  1. HALCION [Concomitant]
     Route: 048
  2. PAXIL [Concomitant]
     Route: 048
  3. ACTEMRA [Suspect]
     Route: 041
     Dates: start: 20090422, end: 20090422
  4. LANSOPRAZOLE [Concomitant]
     Dosage: DRUG REPORTED AS: LANSOPRAZOLE-OD.
     Route: 048
  5. NORVASC [Concomitant]
     Route: 048
  6. ACTEMRA [Suspect]
     Route: 041
     Dates: start: 20090325, end: 20090325
  7. PREDNISOLONE [Concomitant]
     Dosage: DOSE FORM: PERORAL AGENT
     Route: 048
  8. SENNOSIDE [Concomitant]
     Dosage: DOSE FORM: PERORAL AGENT
     Route: 048
  9. VOLTAREN [Concomitant]
     Route: 054
  10. ACTEMRA [Suspect]
     Indication: RHEUMATOID ARTHRITIS
     Route: 041
     Dates: start: 20090225, end: 20090225
  11. PANTOSIN [Concomitant]
     Route: 048
  12. DIGOXIN [Concomitant]
     Route: 048
  13. KETOPROFEN [Concomitant]
     Dosage: FORM: TAPE.
     Route: 061

REACTIONS (3)
  - INTERSTITIAL LUNG DISEASE [None]
  - RIB FRACTURE [None]
  - BURSITIS [None]
